FAERS Safety Report 13842537 (Version 1)
Quarter: 2017Q3

REPORT INFORMATION
  Report Type: Spontaneous
  Country: US (occurrence: US)
  Receive Date: 20170807
  Receipt Date: 20170807
  Transmission Date: 20171127
  Serious: No
  Sender: FDA-Public Use
  Company Number: None

PATIENT
  Age: 67 Year
  Sex: Female
  Weight: 63.9 kg

DRUGS (5)
  1. NEUTROGENA HEALTHY DEFENSE DAILY MOISTURIZER SUNSCREEN BROAD SPECTRUM SPF50 [Suspect]
     Active Substance: AVOBENZONE\HOMOSALATE\OCTISALATE\OCTOCRYLENE\OXYBENZONE
     Indication: THERAPEUTIC SKIN CARE TOPICAL
     Dosage: QUANTITY:1 TEASPOON(S);?STRENGTH: UNKNOWN GTT DROP(S)
     Route: 061
     Dates: start: 20170805, end: 20170805
  2. OMEGA 3 [Concomitant]
     Active Substance: OMEGA-3 FATTY ACIDS
  3. CALCIUM/VITAMIN D [Concomitant]
     Active Substance: CALCIUM\VITAMIN D
  4. MULTIVITAMINS [Concomitant]
     Active Substance: VITAMINS
  5. NEUTROGENA HEALTHY DEFENSE DAILY MOISTURIZER SUNSCREEN BROAD SPECTRUM SPF50 [Suspect]
     Active Substance: AVOBENZONE\HOMOSALATE\OCTISALATE\OCTOCRYLENE\OXYBENZONE
     Indication: PROPHYLAXIS AGAINST SOLAR RADIATION
     Dosage: QUANTITY:1 TEASPOON(S);?STRENGTH: UNKNOWN GTT DROP(S)
     Route: 061
     Dates: start: 20170805, end: 20170805

REACTIONS (3)
  - Application site vesicles [None]
  - Application site erythema [None]
  - Application site swelling [None]

NARRATIVE: CASE EVENT DATE: 20170805
